FAERS Safety Report 25188280 (Version 2)
Quarter: 2025Q4

REPORT INFORMATION
  Report Type: Spontaneous
  Country: GB (occurrence: GB)
  Receive Date: 20250411
  Receipt Date: 20251210
  Transmission Date: 20260117
  Serious: Yes (Disabling)
  Sender: RANBAXY
  Company Number: GB-MHRA-MED-202503300225525960-JRYMN

PATIENT
  Sex: Male

DRUGS (1)
  1. CIPROFLOXACIN [Suspect]
     Active Substance: CIPROFLOXACIN
     Indication: Product used for unknown indication
     Dosage: 500MG TWICE A DAY FOR FIVE DAYS
     Route: 065

REACTIONS (1)
  - Insomnia [Not Recovered/Not Resolved]
